FAERS Safety Report 7796985-6 (Version None)
Quarter: 2011Q4

REPORT INFORMATION
  Report Type: 
  Country: None (occurrence: None)
  Receive Date: 20111005
  Receipt Date: 20111005
  Transmission Date: 20120403
  Serious: Yes (Other)
  Sender: FDA-Public Use
  Company Number: None

PATIENT
  Sex: Female
  Weight: 97.522 kg

DRUGS (2)
  1. HIZENTRA [Concomitant]
     Dosage: 5ML
     Route: 058
     Dates: start: 20110611, end: 20110921
  2. HIZENTRA [Suspect]
     Dosage: 20ML
     Route: 058
     Dates: start: 20110611, end: 20110921

REACTIONS (5)
  - HAEMORRHAGE SUBCUTANEOUS [None]
  - INFUSION SITE HAEMORRHAGE [None]
  - RECTAL HAEMORRHAGE [None]
  - HAEMATOCHEZIA [None]
  - HAEMORRHAGE [None]
